FAERS Safety Report 7339956-6 (Version None)
Quarter: 2011Q1

REPORT INFORMATION
  Report Type: 
  Country: None (occurrence: None)
  Receive Date: 20110309
  Receipt Date: 20110307
  Transmission Date: 20110831
  Serious: No
  Sender: FDA-Public Use
  Company Number: US-PFIZER INC-2010011049

PATIENT
  Sex: Male

DRUGS (2)
  1. ZOLOFT [Suspect]
     Dosage: UNK
  2. PRISTIQ [Suspect]

REACTIONS (4)
  - ANXIETY [None]
  - MALE SEXUAL DYSFUNCTION [None]
  - DEPRESSION [None]
  - DRUG INEFFECTIVE [None]
